FAERS Safety Report 5600871-7 (Version None)
Quarter: 2008Q1

REPORT INFORMATION
  Report Type: 
  Country: None (occurrence: None)
  Receive Date: 20080122
  Receipt Date: 20080122
  Transmission Date: 20080703
  Serious: No
  Sender: FDA-Public Use
  Company Number: None

PATIENT
  Sex: Male
  Weight: 91.8988 kg

DRUGS (2)
  1. VALIUM [Suspect]
     Indication: ANXIETY
     Dosage: 10MG BID PO
     Route: 048
     Dates: start: 20071219
  2. VALIUM [Suspect]
     Indication: ANXIETY
     Dosage: 10MG BID PO
     Route: 048
     Dates: start: 20080116

REACTIONS (3)
  - DRUG INEFFECTIVE [None]
  - PHARMACEUTICAL PRODUCT COMPLAINT [None]
  - THERAPEUTIC RESPONSE UNEXPECTED WITH DRUG SUBSTITUTION [None]
